FAERS Safety Report 17405234 (Version 2)
Quarter: 2021Q3

REPORT INFORMATION
  Report Type: Other
  Country: US (occurrence: US)
  Receive Date: 20200212
  Receipt Date: 20210705
  Transmission Date: 20211014
  Serious: Yes (Other)
  Sender: FDA-Public Use
  Company Number: US-ROCHE-2545820

PATIENT
  Sex: Female

DRUGS (2)
  1. OCREVUS [Suspect]
     Active Substance: OCRELIZUMAB
     Dosage: SUBSEQUENT DOSES OF OCRELIZUMAB:20/JUN/2020, 28/DEC/2020
     Route: 042
     Dates: start: 20191220
  2. OCREVUS [Suspect]
     Active Substance: OCRELIZUMAB
     Indication: RELAPSING-REMITTING MULTIPLE SCLEROSIS
     Dosage: THEN 600 MG EVERY 6 MONTHS
     Route: 042
     Dates: start: 20190606, end: 20190620

REACTIONS (4)
  - Peripheral swelling [Not Recovered/Not Resolved]
  - Ligament sprain [Unknown]
  - Joint dislocation [Unknown]
  - Fall [Unknown]

NARRATIVE: CASE EVENT DATE: 2020
